FAERS Safety Report 22292892 (Version 9)
Quarter: 2025Q1

REPORT INFORMATION
  Report Type: Report from Study
  Country: US (occurrence: US)
  Receive Date: 20230508
  Receipt Date: 20250222
  Transmission Date: 20250409
  Serious: Yes (Death, Life-Threatening, Hospitalization)
  Sender: ABBVIE
  Company Number: US-JNJFOC-20230465955

PATIENT
  Age: 61 Year
  Sex: Male
  Weight: 55 kg

DRUGS (11)
  1. IBRUTINIB [Suspect]
     Active Substance: IBRUTINIB
     Indication: Mantle cell lymphoma
     Route: 048
     Dates: start: 20230315, end: 20230414
  2. ZYTIGA [Suspect]
     Active Substance: ABIRATERONE ACETATE
     Indication: Product used for unknown indication
     Route: 048
  3. GABAPENTIN [Concomitant]
     Active Substance: GABAPENTIN
     Indication: Product used for unknown indication
  4. OXYCODONE [Concomitant]
     Active Substance: OXYCODONE
     Indication: Product used for unknown indication
  5. PANTOPRAZOLE [Concomitant]
     Active Substance: PANTOPRAZOLE
     Indication: Product used for unknown indication
  6. DULOXETINE [Concomitant]
     Active Substance: DULOXETINE
     Indication: Product used for unknown indication
  7. EPIRUBICIN [Concomitant]
     Active Substance: EPIRUBICIN
     Indication: Mantle cell lymphoma
  8. PREDNISONE [Concomitant]
     Active Substance: PREDNISONE
     Indication: Mantle cell lymphoma
  9. ONCOVIN [Concomitant]
     Active Substance: VINCRISTINE SULFATE
     Indication: Mantle cell lymphoma
  10. RITUXIMAB [Concomitant]
     Active Substance: RITUXIMAB
     Indication: Mantle cell lymphoma
  11. CYCLOPHOSPHAMIDE [Concomitant]
     Active Substance: CYCLOPHOSPHAMIDE
     Indication: Mantle cell lymphoma

REACTIONS (4)
  - Respiratory failure [Fatal]
  - Ventricular tachycardia [Recovering/Resolving]
  - Septic shock [Recovered/Resolved with Sequelae]
  - COVID-19 [Recovered/Resolved]

NARRATIVE: CASE EVENT DATE: 20230415
